FAERS Safety Report 9349999 (Version 1)
Quarter: 2013Q2

REPORT INFORMATION
  Report Type: Report from Study
  Country: CL (occurrence: CL)
  Receive Date: 20130614
  Receipt Date: 20130614
  Transmission Date: 20140414
  Serious: Yes (Death)
  Sender: FDA-Public Use
  Company Number: PHHY2013CL060500

PATIENT
  Age: 73 Year
  Sex: Male

DRUGS (1)
  1. EXFORGE [Suspect]
     Route: 048

REACTIONS (1)
  - Gastric cancer [Fatal]
